FAERS Safety Report 10228155 (Version 1)
Quarter: 2014Q2

REPORT INFORMATION
  Report Type: Spontaneous
  Country: US (occurrence: US)
  Receive Date: 20140610
  Receipt Date: 20140610
  Transmission Date: 20141212
  Serious: No
  Sender: FDA-Public Use
  Company Number: US-PFIZER INC-2014156601

PATIENT
  Age: 52 Year
  Sex: Female
  Weight: 81.63 kg

DRUGS (6)
  1. LYRICA [Suspect]
     Indication: NEURALGIA
     Dosage: 75 MG, 2X/DAY
     Route: 048
     Dates: start: 201405, end: 2014
  2. LYRICA [Suspect]
     Dosage: 75 MG, 1X/DAY
     Route: 048
     Dates: start: 2014, end: 2014
  3. LYRICA [Suspect]
     Dosage: 75 MG, 2X/DAY
     Route: 048
     Dates: start: 2014
  4. REBIF REBIDOSE [Concomitant]
     Indication: MULTIPLE SCLEROSIS
     Dosage: UNK
     Dates: start: 201212
  5. BUPROPION [Concomitant]
     Indication: DEPRESSION
     Dosage: UNK
  6. PRILOSEC [Concomitant]
     Dosage: UNK, 2X/DAY

REACTIONS (1)
  - Dizziness [Recovering/Resolving]
